FAERS Safety Report 10015941 (Version 1)
Quarter: 2014Q1

REPORT INFORMATION
  Report Type: Report from Study
  Country: BR (occurrence: BR)
  Receive Date: 20140317
  Receipt Date: 20140317
  Transmission Date: 20141002
  Serious: Yes (Other)
  Sender: FDA-Public Use
  Company Number: PHHY2014BR031201

PATIENT
  Sex: Female

DRUGS (2)
  1. EXELON PATCH [Suspect]
     Indication: DEMENTIA ALZHEIMER^S TYPE
     Dosage: 4.6 MG (9 MG/5 CM2)
     Route: 062
  2. EXELON PATCH [Suspect]
     Dosage: 9.5 MG (18 MG/10 CM2)
     Route: 062

REACTIONS (7)
  - Confusional state [Unknown]
  - Swelling face [Unknown]
  - Aggression [Unknown]
  - Hallucination, visual [Unknown]
  - Drug intolerance [Unknown]
  - Limb injury [Unknown]
  - Inappropriate schedule of drug administration [Unknown]
